FAERS Safety Report 8787972 (Version 2)
Quarter: 2015Q2

REPORT INFORMATION
  Report Type: Report from Study
  Country: US (occurrence: US)
  Receive Date: 20120914
  Receipt Date: 20150629
  Transmission Date: 20150821
  Serious: Yes (Death)
  Sender: FDA-Public Use
  Company Number: US-ROCHE-1127065

PATIENT
  Sex: Female

DRUGS (17)
  1. AVASTIN [Suspect]
     Active Substance: BEVACIZUMAB
     Indication: BREAST CANCER FEMALE
     Route: 042
     Dates: start: 20051219
  2. ABRAXANE [Concomitant]
     Active Substance: PACLITAXEL
     Route: 042
  3. ZANTAC [Concomitant]
     Active Substance: RANITIDINE HYDROCHLORIDE
     Route: 065
  4. CARBOPLATIN. [Concomitant]
     Active Substance: CARBOPLATIN
  5. TAXOL [Concomitant]
     Active Substance: PACLITAXEL
  6. ARANESP [Concomitant]
     Active Substance: DARBEPOETIN ALFA
  7. OXYCONTIN [Concomitant]
     Active Substance: OXYCODONE HYDROCHLORIDE
  8. FEMARA [Concomitant]
     Active Substance: LETROZOLE
  9. ALOXI [Concomitant]
     Active Substance: PALONOSETRON HYDROCHLORIDE
     Route: 042
  10. DECADRON [Concomitant]
     Active Substance: DEXAMETHASONE
     Route: 042
  11. BENADRYL [Concomitant]
     Active Substance: DIPHENHYDRAMINE HYDROCHLORIDE
     Route: 042
  12. ATENOLOL. [Concomitant]
     Active Substance: ATENOLOL
  13. AVASTIN [Suspect]
     Active Substance: BEVACIZUMAB
     Route: 042
     Dates: start: 20060113
  14. AVASTIN [Suspect]
     Active Substance: BEVACIZUMAB
     Route: 042
     Dates: start: 20060106
  15. ZOMETA [Concomitant]
     Active Substance: ZOLEDRONIC ACID
     Route: 042
  16. HERCEPTIN [Suspect]
     Active Substance: TRASTUZUMAB
     Indication: BREAST CANCER FEMALE
     Route: 042
     Dates: start: 200402
  17. PERCOCET [Concomitant]
     Active Substance: ACETAMINOPHEN\OXYCODONE HYDROCHLORIDE

REACTIONS (23)
  - Asthenia [Unknown]
  - Granulocytopenia [Unknown]
  - Hypoaesthesia [Unknown]
  - Dizziness [Unknown]
  - Nausea [Unknown]
  - Bronchitis [Unknown]
  - Death [Fatal]
  - Decreased appetite [Unknown]
  - Anaemia [Unknown]
  - Peroneal nerve palsy [Unknown]
  - Fatigue [Unknown]
  - Arthralgia [Unknown]
  - Back pain [Unknown]
  - Alopecia [Unknown]
  - Rash [Unknown]
  - Disease progression [Unknown]
  - Off label use [Unknown]
  - Urinary tract infection [Unknown]
  - Abdominal discomfort [Unknown]
  - Nasopharyngitis [Unknown]
  - Flank pain [Unknown]
  - Vomiting [Unknown]
  - Hypoacusis [Unknown]
